FAERS Safety Report 26006302 (Version 1)
Quarter: 2025Q4

REPORT INFORMATION
  Report Type: Spontaneous
  Country: EU (occurrence: EU)
  Receive Date: 20251106
  Receipt Date: 20251106
  Transmission Date: 20260117
  Serious: Yes (Other)
  Sender: INSUD PHARMA
  Company Number: EU-EXELTIS PHARMACEUTICAL HOLDING, S.L.-2510FR08964

PATIENT
  Age: 47 Year
  Sex: Female

DRUGS (2)
  1. DROSPIRENONE [Suspect]
     Active Substance: DROSPIRENONE
     Indication: Oral contraception
     Dosage: 4 MILLIGRAM, QD
     Route: 048
     Dates: start: 202311, end: 202311
  2. DROSPIRENONE [Suspect]
     Active Substance: DROSPIRENONE
     Indication: Ovarian disorder

REACTIONS (5)
  - Vulvovaginal pain [Not Recovered/Not Resolved]
  - Abdominal pain [Not Recovered/Not Resolved]
  - Galactorrhoea [Not Recovered/Not Resolved]
  - Papilloma viral infection [Not Recovered/Not Resolved]
  - Product use in unapproved indication [Unknown]

NARRATIVE: CASE EVENT DATE: 20231101
